FAERS Safety Report 22189966 (Version 2)
Quarter: 2023Q2

REPORT INFORMATION
  Report Type: Spontaneous
  Country: US (occurrence: US)
  Receive Date: 20230410
  Receipt Date: 20230418
  Transmission Date: 20230721
  Serious: No
  Sender: FDA-Public Use
  Company Number: US-LEO Pharma-350897

PATIENT
  Sex: Female

DRUGS (1)
  1. ADBRY [Suspect]
     Active Substance: TRALOKINUMAB-LDRM
     Indication: Product used for unknown indication
     Dosage: UNKNOWN
     Dates: start: 20230317

REACTIONS (5)
  - Skin burning sensation [Unknown]
  - Swollen tongue [Unknown]
  - Pruritus [Unknown]
  - Urticaria [Unknown]
  - Hypersensitivity [Unknown]
